FAERS Safety Report 7153541-0 (Version None)
Quarter: 2010Q4

REPORT INFORMATION
  Report Type: 
  Country: None (occurrence: None)
  Receive Date: 20101209
  Receipt Date: 20101209
  Transmission Date: 20110411
  Serious: Yes (Other)
  Sender: FDA-Public Use
  Company Number: None

PATIENT
  Sex: Female
  Weight: 98.4306 kg

DRUGS (1)
  1. LANTUS [Suspect]
     Indication: TYPE 2 DIABETES MELLITUS
     Dosage: 25 UNITS NIGHTLY
     Dates: start: 20101001, end: 20101208

REACTIONS (8)
  - ARTHRALGIA [None]
  - BACK PAIN [None]
  - DIABETES MELLITUS INADEQUATE CONTROL [None]
  - FATIGUE [None]
  - HYPERHIDROSIS [None]
  - MYALGIA [None]
  - PULMONARY FIBROSIS [None]
  - TEMPERATURE INTOLERANCE [None]
